FAERS Safety Report 25466427 (Version 1)
Quarter: 2025Q2

REPORT INFORMATION
  Report Type: Other
  Country: CA (occurrence: CA)
  Receive Date: 20250623
  Receipt Date: 20250623
  Transmission Date: 20250716
  Serious: Yes (Life-Threatening, Other)
  Sender: AMNEAL
  Company Number: CA-AMNEAL PHARMACEUTICALS-2025-AMRX-02278

PATIENT
  Age: 12 Year
  Sex: Female
  Weight: 49.8 kg

DRUGS (23)
  1. CYCLOPHOSPHAMIDE [Suspect]
     Active Substance: CYCLOPHOSPHAMIDE
     Indication: Bone marrow transplant
     Route: 042
  2. ETOPOSIDE [Suspect]
     Active Substance: ETOPOSIDE
     Indication: Bone marrow transplant
     Route: 042
  3. URSODIOL [Concomitant]
     Active Substance: URSODIOL
     Indication: Product used for unknown indication
     Route: 065
  4. ACETAMINOPHEN [Concomitant]
     Active Substance: ACETAMINOPHEN
     Indication: Product used for unknown indication
     Route: 065
  5. ALTEPLASE [Concomitant]
     Active Substance: ALTEPLASE
     Indication: Product used for unknown indication
     Route: 065
  6. AZITHROMYCIN [Concomitant]
     Active Substance: AZITHROMYCIN
     Indication: Product used for unknown indication
     Route: 065
  7. CETIRIZINE [Concomitant]
     Active Substance: CETIRIZINE HYDROCHLORIDE
     Indication: Product used for unknown indication
     Route: 065
  8. CHOLECALCIFEROL [Concomitant]
     Active Substance: CHOLECALCIFEROL
     Indication: Product used for unknown indication
     Route: 065
  9. DEXAMETHASONE [Concomitant]
     Active Substance: DEXAMETHASONE
     Indication: Product used for unknown indication
     Route: 065
  10. FAMOTIDINE [Concomitant]
     Active Substance: FAMOTIDINE
     Indication: Product used for unknown indication
     Route: 065
  11. LORAZEPAM [Concomitant]
     Active Substance: LORAZEPAM
     Indication: Product used for unknown indication
     Route: 065
  12. LEUPROLIDE ACETATE [Concomitant]
     Active Substance: LEUPROLIDE ACETATE
     Indication: Product used for unknown indication
     Route: 065
  13. MESNA [Concomitant]
     Active Substance: MESNA
     Indication: Product used for unknown indication
     Route: 065
  14. METHYLPREDNISOLONE [Concomitant]
     Active Substance: METHYLPREDNISOLONE
     Indication: Product used for unknown indication
     Route: 065
  15. MYCOPHENOLATE MOFETIL [Concomitant]
     Active Substance: MYCOPHENOLATE MOFETIL
     Indication: Product used for unknown indication
     Route: 065
  16. PANTOPRAZOLE [Concomitant]
     Active Substance: PANTOPRAZOLE
     Indication: Product used for unknown indication
     Route: 065
  17. PIPERACILLIN SODIUM\TAZOBACTAM SODIUM [Concomitant]
     Active Substance: PIPERACILLIN SODIUM\TAZOBACTAM SODIUM
     Indication: Product used for unknown indication
     Route: 065
  18. PROTAMINE SULFATE [Concomitant]
     Active Substance: PROTAMINE SULFATE
     Indication: Product used for unknown indication
     Route: 065
  19. TACROLIMUS [Concomitant]
     Active Substance: TACROLIMUS
     Indication: Product used for unknown indication
     Route: 065
  20. SULFAMETHOXAZOLE\TRIMETHOPRIM [Concomitant]
     Active Substance: SULFAMETHOXAZOLE\TRIMETHOPRIM
     Indication: Product used for unknown indication
     Route: 065
  21. VALACYCLOVIR [Concomitant]
     Active Substance: VALACYCLOVIR HYDROCHLORIDE
     Indication: Product used for unknown indication
     Route: 065
  22. LETERMOVIR [Concomitant]
     Active Substance: LETERMOVIR
     Indication: Product used for unknown indication
     Route: 065
  23. CEFTAZIDIME [Concomitant]
     Active Substance: CEFTAZIDIME
     Indication: Product used for unknown indication
     Route: 065

REACTIONS (7)
  - Enteral nutrition [Recovered/Resolved]
  - Platelet transfusion [Recovered/Resolved]
  - Red blood cell transfusion [Recovered/Resolved]
  - Gastrointestinal tube insertion [Recovered/Resolved]
  - Aplastic anaemia [Recovered/Resolved]
  - Diarrhoea [Recovered/Resolved]
  - Mucosal inflammation [Recovered/Resolved]
